FAERS Safety Report 5144705-6 (Version None)
Quarter: 2006Q4

REPORT INFORMATION
  Report Type: 
  Country: None (occurrence: None)
  Receive Date: 20061031
  Receipt Date: 20061016
  Transmission Date: 20070319
  Serious: Yes (Hospitalization)
  Sender: FDA-Public Use
  Company Number: 2006PV023382

PATIENT
  Age: 69 Year
  Sex: Male
  Weight: 97.5234 kg

DRUGS (4)
  1. BYETTA [Suspect]
     Indication: DIABETES MELLITUS NON-INSULIN-DEPENDENT
     Dosage: 5 MCG;BID; SC
     Route: 058
     Dates: start: 20060901
  2. AMARYL [Concomitant]
  3. AVANDIA [Concomitant]
  4. GLUCOPHAGE [Concomitant]

REACTIONS (2)
  - DRUG EFFECT DECREASED [None]
  - PROCEDURAL PAIN [None]
